FAERS Safety Report 25312793 (Version 1)
Quarter: 2025Q2

REPORT INFORMATION
  Report Type: Spontaneous
  Country: US (occurrence: None)
  Receive Date: 20250513
  Receipt Date: 20250513
  Transmission Date: 20250716
  Serious: Yes (Other)
  Sender: FDA-CTU
  Company Number: None

PATIENT
  Sex: Female
  Weight: 49.5 kg

DRUGS (1)
  1. SPIRONOLACTONE [Suspect]
     Active Substance: SPIRONOLACTONE
     Indication: Acne
     Dosage: OTHER QUANTITY : 30 TABLET(S);?FREQUENCY : DAILY;?
     Route: 048

REACTIONS (9)
  - Oral dysaesthesia [None]
  - Lip dry [None]
  - Chapped lips [None]
  - Lip swelling [None]
  - Lip pruritus [None]
  - Throat tightness [None]
  - Throat irritation [None]
  - Dyspnoea [None]
  - Dehydration [None]
